FAERS Safety Report 10506953 (Version 4)
Quarter: 2015Q1

REPORT INFORMATION
  Report Type: Report from Study
  Country: US (occurrence: US)
  Receive Date: 20141009
  Receipt Date: 20150217
  Transmission Date: 20150720
  Serious: Yes (Hospitalization, Other)
  Sender: FDA-Public Use
  Company Number: US-JNJFOC-20141004227

PATIENT
  Age: 62 Year
  Sex: Male
  Weight: 92.1 kg

DRUGS (12)
  1. FRESH FROZEN PLASMA [Concomitant]
     Active Substance: HUMAN PLASMA
     Indication: PROPHYLAXIS
     Dosage: 2-4 IU, SINGLE
     Dates: start: 201304
  2. FRESH FROZEN PLASMA [Concomitant]
     Active Substance: HUMAN PLASMA
     Indication: PROPHYLAXIS
     Dosage: SINGLE
     Dates: start: 20140924, end: 20140924
  3. PLATELETS [Concomitant]
     Active Substance: HUMAN PLATELET, ALLOGENIC
     Indication: PROPHYLAXIS
     Dosage: SINGLE
     Dates: start: 20140924, end: 20140924
  4. FLONASE [Concomitant]
     Active Substance: FLUTICASONE PROPIONATE
     Indication: ALLERGY PROPHYLAXIS
     Dates: start: 20140418
  5. RED BLOOD CELLS [Concomitant]
     Active Substance: HUMAN RED BLOOD CELL
     Dosage: 1-3 IU, SINGLE
     Dates: start: 201304
  6. IBRUTINIB [Suspect]
     Active Substance: IBRUTINIB
     Route: 048
  7. PLATELETS [Concomitant]
     Active Substance: HUMAN PLATELET, ALLOGENIC
     Indication: PROPHYLAXIS
     Dosage: SINGLE
     Dates: start: 201304
  8. IMMUNOGLOBULIN [Concomitant]
     Active Substance: HUMAN IMMUNOGLOBULIN G
     Indication: SUPPORTIVE CARE
     Dosage: SINGLE
     Route: 042
     Dates: start: 20130403
  9. IBRUTINIB [Suspect]
     Active Substance: IBRUTINIB
     Indication: CHRONIC LYMPHOCYTIC LEUKAEMIA
     Route: 048
     Dates: start: 20130405, end: 20140923
  10. ALLOPURINOL. [Concomitant]
     Active Substance: ALLOPURINOL
     Indication: PROPHYLAXIS
     Dates: start: 20130319
  11. TYLENOL [Concomitant]
     Active Substance: ACETAMINOPHEN
     Indication: PLATELET TRANSFUSION
     Dosage: SINGLE
     Route: 048
     Dates: start: 20140924, end: 20140924
  12. BENADRYL [Concomitant]
     Active Substance: DIPHENHYDRAMINE HYDROCHLORIDE
     Indication: PLATELET TRANSFUSION
     Dosage: SINGLE
     Route: 048
     Dates: start: 20140924, end: 20140924

REACTIONS (2)
  - Lobar pneumonia [Recovered/Resolved]
  - Subdural haematoma [Recovered/Resolved]

NARRATIVE: CASE EVENT DATE: 20140929
